FAERS Safety Report 15243411 (Version 2)
Quarter: 2018Q4

REPORT INFORMATION
  Report Type: Spontaneous
  Country: US (occurrence: US)
  Receive Date: 20180806
  Receipt Date: 20181011
  Transmission Date: 20190204
  Serious: No
  Sender: FDA-Public Use
  Company Number: US-ASTRAZENECA-2018SE96311

PATIENT
  Age: 31840 Day
  Sex: Female
  Weight: 62.6 kg

DRUGS (1)
  1. BYDUREON [Suspect]
     Active Substance: EXENATIDE
     Indication: DIABETES MELLITUS
     Route: 058
     Dates: start: 20180629

REACTIONS (2)
  - Needle issue [Unknown]
  - Nervousness [Unknown]

NARRATIVE: CASE EVENT DATE: 20180725
